FAERS Safety Report 10199007 (Version 1)
Quarter: 2014Q2

REPORT INFORMATION
  Report Type: Spontaneous
  Country: US (occurrence: US)
  Receive Date: 20140527
  Receipt Date: 20140527
  Transmission Date: 20141212
  Serious: No
  Sender: FDA-Public Use
  Company Number: US-NOVEN-13US007866

PATIENT
  Sex: Male

DRUGS (4)
  1. DAYTRANA [Suspect]
     Indication: ATTENTION DEFICIT/HYPERACTIVITY DISORDER
     Dosage: 10 MG, UNK
     Route: 062
     Dates: start: 2006, end: 2006
  2. DAYTRANA [Suspect]
     Dosage: 10 MG, UNK
     Route: 062
     Dates: start: 20131003
  3. WELLBUTRIN [Concomitant]
     Indication: ATTENTION DEFICIT/HYPERACTIVITY DISORDER
     Dosage: 300 MG, UNK
     Route: 048
     Dates: start: 201306
  4. WELLBUTRIN [Concomitant]
     Indication: DEPRESSION

REACTIONS (1)
  - Application site pruritus [Recovered/Resolved]
